FAERS Safety Report 11699824 (Version 1)
Quarter: 2015Q4

REPORT INFORMATION
  Report Type: Spontaneous
  Country: US (occurrence: US)
  Receive Date: 20151105
  Receipt Date: 20151105
  Transmission Date: 20160304
  Serious: No
  Sender: FDA-Public Use
  Company Number: US-JNJFOC-20150917049

PATIENT
  Age: 90 Year
  Sex: Female

DRUGS (20)
  1. NIZORAL A-D [Suspect]
     Active Substance: KETOCONAZOLE
     Route: 061
  2. NORCO [Concomitant]
     Active Substance: ACETAMINOPHEN\HYDROCODONE BITARTRATE
     Dosage: 10/325MG
     Route: 065
  3. THEOPHYLLINE [Concomitant]
     Active Substance: THEOPHYLLINE ANHYDROUS
     Route: 065
  4. LASIX [Concomitant]
     Active Substance: FUROSEMIDE
     Route: 065
  5. NIZORAL A-D [Suspect]
     Active Substance: KETOCONAZOLE
     Indication: SKIN REACTION
     Dosage: NICKEL- QUARTER SIZE
     Route: 061
     Dates: start: 20150918
  6. NAMENDA [Concomitant]
     Active Substance: MEMANTINE HYDROCHLORIDE
     Route: 065
  7. VITAMIN D [Concomitant]
     Active Substance: CHOLECALCIFEROL
     Route: 065
  8. FLONASE [Concomitant]
     Active Substance: FLUTICASONE PROPIONATE
     Route: 065
  9. OMEPRAZOLE. [Concomitant]
     Active Substance: OMEPRAZOLE
     Route: 065
  10. GLIPIZIDE. [Concomitant]
     Active Substance: GLIPIZIDE
     Route: 065
  11. PROAIR HFA [Concomitant]
     Active Substance: ALBUTEROL SULFATE
     Route: 065
  12. ATIVAN [Concomitant]
     Active Substance: LORAZEPAM
     Route: 065
  13. MIRALAX [Concomitant]
     Active Substance: POLYETHYLENE GLYCOL 3350
     Route: 065
  14. DONEPEZIL. [Concomitant]
     Active Substance: DONEPEZIL
     Route: 065
  15. O2 [Concomitant]
     Route: 065
  16. SPIRIVA [Concomitant]
     Active Substance: TIOTROPIUM BROMIDE MONOHYDRATE
     Route: 065
  17. POTASSIUM [Concomitant]
     Active Substance: POTASSIUM
     Route: 065
  18. DILTIAZEM [Concomitant]
     Active Substance: DILTIAZEM
     Route: 065
  19. LYRICA [Concomitant]
     Active Substance: PREGABALIN
     Route: 065
  20. PREDNISOLONE. [Concomitant]
     Active Substance: PREDNISOLONE
     Route: 065

REACTIONS (2)
  - Confusional state [Unknown]
  - Tremor [Unknown]
